FAERS Safety Report 5729375-8 (Version None)
Quarter: 2008Q2

REPORT INFORMATION
  Report Type: 
  Country: None (occurrence: None)
  Receive Date: 20080506
  Receipt Date: 20080424
  Transmission Date: 20081010
  Serious: Yes (Hospitalization, Other)
  Sender: FDA-Public Use
  Company Number: US-PFIZER INC-2008038729

PATIENT
  Sex: Female
  Weight: 58.181 kg

DRUGS (11)
  1. CHANTIX [Suspect]
     Indication: SMOKING CESSATION THERAPY
  2. CLONAZEPAM [Concomitant]
  3. SERTRALINE [Concomitant]
  4. BENADRYL [Concomitant]
  5. SEROQUEL [Concomitant]
  6. NAMENDA [Concomitant]
  7. HALOPERIDOL [Concomitant]
  8. PREVACID [Concomitant]
  9. MONTELUKAST SODIUM [Concomitant]
  10. ANTI-ASTHMATICS [Concomitant]
  11. MOTRIN [Concomitant]

REACTIONS (5)
  - CEREBROVASCULAR ACCIDENT [None]
  - FALL [None]
  - HIP SWELLING [None]
  - MENTAL DISORDER [None]
  - PARKINSON'S DISEASE [None]
